FAERS Safety Report 10748247 (Version 2)
Quarter: 2015Q2

REPORT INFORMATION
  Report Type: Spontaneous
  Country: IT (occurrence: None)
  Receive Date: 20150127
  Receipt Date: 20150603
  Transmission Date: 20150821
  Serious: Yes (Hospitalization)
  Sender: FDA-Public Use
  Company Number: IT-ALSI-201500013

PATIENT
  Age: 86 Year
  Sex: Male

DRUGS (2)
  1. OSSIGENO AIR LIQUIDE SANITA^ GAS MEDICINALE CRIOGENICO OXYGEN [Suspect]
     Active Substance: OXYGEN
     Indication: RESPIRATORY FAILURE
     Dosage: 6 L ONCE A DAY RESPIRATORY
     Dates: start: 20150111, end: 20150111
  2. COUMADIN [Concomitant]
     Active Substance: WARFARIN SODIUM

REACTIONS (2)
  - Hypercapnic coma [None]
  - Therapy change [None]

NARRATIVE: CASE EVENT DATE: 20150111
